FAERS Safety Report 5994342-6 (Version None)
Quarter: 2008Q4

REPORT INFORMATION
  Report Type: 
  Country: None (occurrence: None)
  Receive Date: 20081212
  Receipt Date: 20080905
  Transmission Date: 20090506
  Serious: No
  Sender: FDA-Public Use
  Company Number: US-ABBOTT-08P-163-0474583-00

PATIENT
  Sex: Female
  Weight: 90.8 kg

DRUGS (6)
  1. HUMIRA [Suspect]
     Indication: CROHN'S DISEASE
     Dosage: LOADING DOSE
     Dates: start: 20080801, end: 20080801
  2. HUMIRA [Suspect]
     Route: 058
     Dates: start: 20080901, end: 20080905
  3. HUMIRA [Suspect]
     Route: 058
     Dates: start: 20080912
  4. MESALAMINE [Concomitant]
     Indication: CROHN'S DISEASE
     Dosage: UNIT: 400 MILLIGRAM TABLETS
     Route: 048
     Dates: start: 20071101
  5. PANTOPRAZOLE SODIUM [Concomitant]
     Indication: GASTROOESOPHAGEAL REFLUX DISEASE
     Route: 048
     Dates: start: 20071001
  6. VICODIN [Concomitant]
     Indication: ARTHRALGIA
     Dosage: FORM: 5/500 MILLIGRAMS
     Route: 048

REACTIONS (4)
  - ABDOMINAL DISCOMFORT [None]
  - ABDOMINAL PAIN [None]
  - BODY TEMPERATURE INCREASED [None]
  - FEELING HOT [None]
